FAERS Safety Report 7453760-X (Version None)
Quarter: 2011Q2

REPORT INFORMATION
  Report Type: 
  Country: None (occurrence: None)
  Receive Date: 20110502
  Receipt Date: 20110119
  Transmission Date: 20111010
  Serious: Yes (Other)
  Sender: FDA-Public Use
  Company Number: US-ASTRAZENECA-2011SE03405

PATIENT

DRUGS (2)
  1. ASPIRIN [Concomitant]
     Indication: CARDIAC DISORDER
  2. NEXIUM [Suspect]
     Route: 048

REACTIONS (2)
  - DRUG DOSE OMISSION [None]
  - GASTRIC ULCER HAEMORRHAGE [None]
